FAERS Safety Report 6873029-1 (Version None)
Quarter: 2010Q3

REPORT INFORMATION
  Report Type: 
  Country: None (occurrence: None)
  Receive Date: 20100723
  Receipt Date: 20081125
  Transmission Date: 20110219
  Serious: No
  Sender: FDA-Public Use
  Company Number: US-PFIZER INC-2008100214

PATIENT
  Sex: Female
  Weight: 77.727 kg

DRUGS (5)
  1. CHANTIX [Suspect]
     Indication: SMOKING CESSATION THERAPY
     Route: 048
     Dates: start: 20081101, end: 20081121
  2. INSULIN [Concomitant]
  3. METFORMIN [Concomitant]
  4. SYNTHROID [Concomitant]
  5. LEXAPRO [Concomitant]

REACTIONS (2)
  - AGITATION [None]
  - DEPRESSION [None]
